FAERS Safety Report 16529018 (Version 1)
Quarter: 2019Q3

REPORT INFORMATION
  Report Type: Report from Study
  Country: US (occurrence: US)
  Receive Date: 20190703
  Receipt Date: 20190703
  Transmission Date: 20191004
  Serious: Yes (Other)
  Sender: FDA-Public Use
  Company Number: US-TAKEDA-2018TUS006539

PATIENT
  Sex: Female

DRUGS (1)
  1. PONATINIB [Suspect]
     Active Substance: PONATINIB
     Indication: ACUTE LYMPHOCYTIC LEUKAEMIA
     Dosage: 15 MILLIGRAM, QD
     Route: 048
     Dates: start: 20170128

REACTIONS (12)
  - Acute lymphocytic leukaemia recurrent [Unknown]
  - Muscle spasms [Unknown]
  - Palpitations [Unknown]
  - Diabetes mellitus inadequate control [Unknown]
  - Hypogammaglobulinaemia [Unknown]
  - Sinus disorder [Unknown]
  - Transaminases increased [Unknown]
  - Blood glucose increased [Unknown]
  - Hypokalaemia [Unknown]
  - Pneumonia [Unknown]
  - Blood cholesterol increased [Unknown]
  - Hypertension [Unknown]
